FAERS Safety Report 23109572 (Version 1)
Quarter: 2023Q4

REPORT INFORMATION
  Report Type: Report from Study
  Country: US (occurrence: US)
  Receive Date: 20231026
  Receipt Date: 20231026
  Transmission Date: 20240109
  Serious: Yes (Other)
  Sender: FDA-Public Use
  Company Number: US-TEVA-2023-US-2937326

PATIENT

DRUGS (3)
  1. DEXAMETHASONE [Suspect]
     Active Substance: DEXAMETHASONE
     Indication: Plasma cell myeloma refractory
     Dosage: SCHEDULED TO RECEIVE ON DAYS 1-4, 9-12 AND 17-20 OF 28 DAYS CYCLE
     Route: 065
  2. CYCLOPHOSPHAMIDE [Suspect]
     Active Substance: CYCLOPHOSPHAMIDE
     Indication: Plasma cell myeloma refractory
     Dosage: EVERY 12H ON DAYS 1-4 OF 28-DAY CYCLE
     Route: 042
  3. MESNA [Concomitant]
     Active Substance: MESNA
     Indication: Chemotherapy side effect prophylaxis
     Dosage: 400 MG/M2 INFUSION OVER 24H, ON DAYS 1-4
     Route: 041

REACTIONS (1)
  - Atrial fibrillation [Unknown]
